FAERS Safety Report 6502686-4 (Version None)
Quarter: 2009Q4

REPORT INFORMATION
  Report Type: 
  Country: None (occurrence: None)
  Receive Date: 20091127
  Receipt Date: 20090803
  Transmission Date: 20100525
  Serious: No
  Sender: FDA-Public Use
  Company Number: 001412

PATIENT
  Sex: Male
  Weight: 80 kg

DRUGS (6)
  1. LACOSAMIDE [Suspect]
     Indication: CONVULSION
     Dosage: 50 MG BID ORAL, 200 MG QD ORAL, 150 MG QD ORAL
     Route: 048
     Dates: start: 20090701, end: 20090701
  2. LACOSAMIDE [Suspect]
     Indication: CONVULSION
     Dosage: 50 MG BID ORAL, 200 MG QD ORAL, 150 MG QD ORAL
     Route: 048
     Dates: start: 20090701, end: 20090801
  3. LACOSAMIDE [Suspect]
     Indication: CONVULSION
     Dosage: 50 MG BID ORAL, 200 MG QD ORAL, 150 MG QD ORAL
     Route: 048
     Dates: start: 20090801
  4. LEVETIRACETAM [Concomitant]
  5. CARBAMAZEPINE [Concomitant]
  6. LEXAPRO [Concomitant]

REACTIONS (4)
  - DIPLOPIA [None]
  - DIZZINESS [None]
  - GASTROOESOPHAGEAL SPHINCTER INSUFFICIENCY [None]
  - NAUSEA [None]
